FAERS Safety Report 21145029 (Version 6)
Quarter: 2022Q3

REPORT INFORMATION
  Report Type: Report from Study
  Country: NZ (occurrence: NZ)
  Receive Date: 20220729
  Receipt Date: 20220923
  Transmission Date: 20221027
  Serious: Yes (Life-Threatening, Hospitalization, Other)
  Sender: FDA-Public Use
  Company Number: NZ-BRISTOL-MYERS SQUIBB COMPANY-2022-075788

PATIENT
  Age: 69 Year
  Sex: Male

DRUGS (57)
  1. POMALIDOMIDE [Suspect]
     Active Substance: POMALIDOMIDE
     Indication: Plasma cell myeloma refractory
     Dosage: CYC
     Route: 048
     Dates: start: 20220215, end: 20220704
  2. POMALIDOMIDE [Suspect]
     Active Substance: POMALIDOMIDE
     Dosage: CYC
     Route: 048
     Dates: start: 20220809, end: 20220823
  3. DEXAMETHASONE [Suspect]
     Active Substance: DEXAMETHASONE
     Indication: Plasma cell myeloma refractory
     Dosage: CYC
     Route: 048
     Dates: start: 20220215, end: 20220702
  4. DEXAMETHASONE [Suspect]
     Active Substance: DEXAMETHASONE
     Dosage: CYC
     Route: 048
     Dates: start: 20220823
  5. DEXAMETHASONE [Suspect]
     Active Substance: DEXAMETHASONE
     Dosage: 12 MG, CYC, DAY 3;
     Route: 048
     Dates: start: 20220809
  6. BORTEZOMIB [Suspect]
     Active Substance: BORTEZOMIB
     Indication: Plasma cell myeloma refractory
     Dosage: CYC
     Route: 058
     Dates: start: 20220215, end: 20220701
  7. BORTEZOMIB [Suspect]
     Active Substance: BORTEZOMIB
     Dosage: CYC DAY 1 AND 8
     Route: 058
     Dates: start: 20220809, end: 20220830
  8. TURMERIC 15800 COMPLEX [Concomitant]
  9. TURMERIC 15800 COMPLEX [Concomitant]
     Indication: Product used for unknown indication
  10. TURMERIC 15800 COMPLEX [Concomitant]
     Dates: start: 202001
  11. PROPOLIS WAX [Concomitant]
     Active Substance: PROPOLIS WAX
  12. PROPOLIS WAX [Concomitant]
     Active Substance: PROPOLIS WAX
     Indication: Product used for unknown indication
  13. PROPOLIS WAX [Concomitant]
     Active Substance: PROPOLIS WAX
     Dates: start: 202001
  14. VALACYCLOVIR HYDROCHLORIDE [Concomitant]
     Active Substance: VALACYCLOVIR HYDROCHLORIDE
  15. VALACYCLOVIR HYDROCHLORIDE [Concomitant]
     Active Substance: VALACYCLOVIR HYDROCHLORIDE
     Indication: Product used for unknown indication
  16. VALACYCLOVIR HYDROCHLORIDE [Concomitant]
     Active Substance: VALACYCLOVIR HYDROCHLORIDE
     Dates: start: 20220215
  17. COTRIMOXAZOLE [Concomitant]
     Active Substance: SULFAMETHOXAZOLE\TRIMETHOPRIM
  18. COTRIMOXAZOLE [Concomitant]
     Active Substance: SULFAMETHOXAZOLE\TRIMETHOPRIM
     Indication: Product used for unknown indication
  19. COTRIMOXAZOLE [Concomitant]
     Active Substance: SULFAMETHOXAZOLE\TRIMETHOPRIM
     Dates: start: 20220215
  20. DOCUSATE SODIUM\SENNOSIDES A AND B [Concomitant]
     Active Substance: DOCUSATE SODIUM\SENNOSIDES A AND B
  21. DOCUSATE SODIUM\SENNOSIDES A AND B [Concomitant]
     Active Substance: DOCUSATE SODIUM\SENNOSIDES A AND B
     Indication: Product used for unknown indication
  22. DOCUSATE SODIUM\SENNOSIDES A AND B [Concomitant]
     Active Substance: DOCUSATE SODIUM\SENNOSIDES A AND B
     Dates: start: 20220221
  23. POLYETHYLENE GLYCOL 3350\POTASSIUM CHLORIDE\SODIUM BICARBONATE\SODIUM [Concomitant]
     Active Substance: POLYETHYLENE GLYCOL 3350\POTASSIUM CHLORIDE\SODIUM BICARBONATE\SODIUM CHLORIDE
  24. POLYETHYLENE GLYCOL 3350\POTASSIUM CHLORIDE\SODIUM BICARBONATE\SODIUM [Concomitant]
     Active Substance: POLYETHYLENE GLYCOL 3350\POTASSIUM CHLORIDE\SODIUM BICARBONATE\SODIUM CHLORIDE
     Indication: Product used for unknown indication
  25. POLYETHYLENE GLYCOL 3350\POTASSIUM CHLORIDE\SODIUM BICARBONATE\SODIUM [Concomitant]
     Active Substance: POLYETHYLENE GLYCOL 3350\POTASSIUM CHLORIDE\SODIUM BICARBONATE\SODIUM CHLORIDE
     Dates: start: 20220221
  26. METOPROLOL [Concomitant]
     Active Substance: METOPROLOL
     Indication: Product used for unknown indication
  27. METOPROLOL [Concomitant]
     Active Substance: METOPROLOL
  28. FELODIPINE [Concomitant]
     Active Substance: FELODIPINE
  29. FELODIPINE [Concomitant]
     Active Substance: FELODIPINE
  30. METOCLOPRAMIDE [Concomitant]
     Active Substance: METOCLOPRAMIDE
  31. METOCLOPRAMIDE [Concomitant]
     Active Substance: METOCLOPRAMIDE
     Indication: Product used for unknown indication
     Dates: start: 20220215
  32. ONDANSETRON [Concomitant]
     Active Substance: ONDANSETRON
  33. ONDANSETRON [Concomitant]
     Active Substance: ONDANSETRON
     Indication: Product used for unknown indication
     Dates: start: 20220215
  34. METOPROLOL [Concomitant]
     Active Substance: METOPROLOL
     Dates: start: 20200525
  35. METOPROLOL [Concomitant]
     Active Substance: METOPROLOL
     Indication: Product used for unknown indication
  36. FELODIPINE [Concomitant]
     Active Substance: FELODIPINE
     Dates: start: 20190903
  37. FELODIPINE [Concomitant]
     Active Substance: FELODIPINE
     Indication: Product used for unknown indication
  38. TRIPLE ZINC FX [Concomitant]
     Indication: Product used for unknown indication
     Dates: start: 202001
  39. TURKEY TAIL MUSHROOM [Concomitant]
     Indication: Product used for unknown indication
     Dates: start: 202001
  40. DIETARY SUPPLEMENT\RESVERATROL [Concomitant]
     Active Substance: DIETARY SUPPLEMENT\RESVERATROL
     Indication: Product used for unknown indication
     Dates: start: 202001
  41. ACETAMINOPHEN [Concomitant]
     Active Substance: ACETAMINOPHEN
     Indication: Product used for unknown indication
     Dates: start: 20120106
  42. ASPIRIN [Concomitant]
     Active Substance: ASPIRIN
     Indication: Thrombosis prophylaxis
     Dates: start: 20220318, end: 20220715
  43. VITAMIN B12 [Concomitant]
     Active Substance: CYANOCOBALAMIN
     Indication: Product used for unknown indication
     Dates: start: 202001
  44. IODINE [Concomitant]
     Active Substance: IODINE
     Indication: Product used for unknown indication
     Route: 048
     Dates: start: 202001
  45. RIVAROXABAN [Concomitant]
     Active Substance: RIVAROXABAN
     Indication: Thrombosis prophylaxis
     Route: 048
     Dates: start: 20220308, end: 20220317
  46. DIBUCAINE\ESCULIN\HYDROCORTISONE\NEOMYCIN [Concomitant]
     Active Substance: DIBUCAINE\ESCULIN\HYDROCORTISONE\NEOMYCIN
     Indication: Haemorrhoids
     Dosage: PRN
     Route: 061
     Dates: start: 20191101
  47. BIO MAGNESIUM [MAGNESIUM] [Concomitant]
     Indication: Supplementation therapy
     Dosage: PRN
     Route: 048
     Dates: start: 202001
  48. VITAMIN B COMPLEX [CYANOCOBALAMIN] [Concomitant]
     Indication: Supplementation therapy
     Dosage: NICOTINAMIDE 20 MG + PYRIDOXINE HYDROCHLORIDE 2 MG + RIBOFLAVIN 2 MG + THIAMINE NITRATE 5 MG
     Route: 048
     Dates: start: 20220308
  49. FLEET ENEMA [Concomitant]
     Active Substance: SODIUM PHOSPHATE, DIBASIC\SODIUM PHOSPHATE, MONOBASIC
     Indication: Constipation
     Dosage: PRN
     Route: 054
     Dates: start: 20220322
  50. ZOLEDRONIC ACID [Concomitant]
     Active Substance: ZOLEDRONIC ACID
     Indication: Product used for unknown indication
     Dates: start: 20220321
  51. ZOLEDRONIC ACID [Concomitant]
     Active Substance: ZOLEDRONIC ACID
  52. POTASSIUM CHLORIDE [Concomitant]
     Active Substance: POTASSIUM CHLORIDE
     Indication: Product used for unknown indication
     Dates: start: 20220711, end: 20220717
  53. POTASSIUM CHLORIDE [Concomitant]
     Active Substance: POTASSIUM CHLORIDE
  54. HALOPERIDOL [HALOPERIDOL LACTATE] [Concomitant]
     Indication: Product used for unknown indication
     Dates: start: 20220711, end: 20220719
  55. HALOPERIDOL [HALOPERIDOL LACTATE] [Concomitant]
  56. PHOLCODINE [Concomitant]
     Active Substance: PHOLCODINE
     Indication: Product used for unknown indication
     Dates: start: 20220713, end: 20220713
  57. PHOLCODINE [Concomitant]
     Active Substance: PHOLCODINE

REACTIONS (3)
  - Pneumonia [Recovered/Resolved]
  - Neutropenic sepsis [Recovered/Resolved]
  - Duodenal ulcer perforation [Recovered/Resolved]

NARRATIVE: CASE EVENT DATE: 20220711
